FAERS Safety Report 10081432 (Version 2)
Quarter: 2014Q2

REPORT INFORMATION
  Report Type: Spontaneous
  Country: FR (occurrence: FR)
  Receive Date: 20140416
  Receipt Date: 20140619
  Transmission Date: 20141212
  Serious: Yes (Hospitalization)
  Sender: FDA-Public Use
  Company Number: FR-ASTRAZENECA-2014SE25367

PATIENT
  Age: 22139 Day
  Sex: Male

DRUGS (6)
  1. CRESTOR [Suspect]
     Indication: HYPERCHOLESTEROLAEMIA
     Route: 048
     Dates: start: 20140304, end: 20140312
  2. VIT B1/B6 [Concomitant]
     Dosage: THREE TIMES A DAY
     Dates: start: 20140120
  3. MIANSERINE [Concomitant]
     Route: 048
     Dates: start: 20140120
  4. KARDEGIC [Concomitant]
     Route: 048
     Dates: start: 20140120
  5. SERESTA [Concomitant]
     Route: 048
     Dates: start: 20140120
  6. PANTOPRAZOLE [Concomitant]
     Route: 048
     Dates: start: 20140120

REACTIONS (3)
  - Oedema [Recovered/Resolved]
  - Dizziness [Recovered/Resolved]
  - Muscular weakness [Recovered/Resolved]
